FAERS Safety Report 11342370 (Version 3)
Quarter: 2015Q3

REPORT INFORMATION
  Report Type: Spontaneous
  Country: JP (occurrence: JP)
  Receive Date: 20150805
  Receipt Date: 20150817
  Transmission Date: 20151125
  Serious: Yes (Life-Threatening, Other)
  Sender: FDA-Public Use
  Company Number: JP-PFIZER INC-2015226670

PATIENT
  Age: 72 Year
  Sex: Male
  Weight: 61 kg

DRUGS (2)
  1. LYRICA [Suspect]
     Active Substance: PREGABALIN
     Indication: PAIN
     Dosage: 25 MG, 1X/DAY
     Route: 048
     Dates: start: 20110122, end: 20150704
  2. LYRICA [Suspect]
     Active Substance: PREGABALIN
     Dosage: 25 MG, ONLY ON THE DAY OF DIALYSIS, I.E., EVERY TUESDAY, THURSDAY AND SATURDAY
     Route: 048
     Dates: start: 20150707, end: 20150801

REACTIONS (3)
  - Loss of consciousness [Unknown]
  - Somnolence [Recovered/Resolved]
  - Seizure [Unknown]

NARRATIVE: CASE EVENT DATE: 20150606
